FAERS Safety Report 24987317 (Version 2)
Quarter: 2025Q1

REPORT INFORMATION
  Report Type: Spontaneous
  Country: US (occurrence: US)
  Receive Date: 20250219
  Receipt Date: 20250304
  Transmission Date: 20250409
  Serious: No
  Sender: PFIZER
  Company Number: US-PFIZER INC-202500035990

PATIENT
  Age: 66 Year
  Sex: Female
  Weight: 99.79 kg

DRUGS (19)
  1. NURTEC ODT [Suspect]
     Active Substance: RIMEGEPANT SULFATE
     Indication: Migraine
     Dosage: 75 MILLIGRAMS, EVERY OTHER DAY
  2. NURTEC ODT [Suspect]
     Active Substance: RIMEGEPANT SULFATE
     Route: 048
     Dates: start: 20250108
  3. HALDOL [Suspect]
     Active Substance: HALOPERIDOL
     Indication: Migraine
     Route: 048
     Dates: start: 2000
  4. HALDOL [Suspect]
     Active Substance: HALOPERIDOL
  5. ATIVAN [Suspect]
     Active Substance: LORAZEPAM
     Indication: Migraine
     Route: 048
     Dates: start: 2000
  6. ATIVAN [Suspect]
     Active Substance: LORAZEPAM
  7. ELIQUIS [Concomitant]
     Active Substance: APIXABAN
     Indication: Thrombosis
     Dosage: 2.5 MG, 2X/DAY
  8. GABAPENTIN [Concomitant]
     Active Substance: GABAPENTIN
     Indication: Back pain
     Dosage: 400 MG, 2X/DAY
  9. GABAPENTIN [Concomitant]
     Active Substance: GABAPENTIN
  10. GABAPENTIN [Concomitant]
     Active Substance: GABAPENTIN
  11. PRILOSEC [Concomitant]
     Active Substance: OMEPRAZOLE MAGNESIUM
  12. NAMENDA [Concomitant]
     Active Substance: MEMANTINE HYDROCHLORIDE
     Indication: Memory impairment
     Dosage: 20 MG, DAILY
  13. NAMENDA [Concomitant]
     Active Substance: MEMANTINE HYDROCHLORIDE
     Dosage: 10 MG, DAILY
  14. TOPAMAX [Concomitant]
     Active Substance: TOPIRAMATE
     Indication: Migraine
     Dosage: 100 MG, DAILY
  15. LINZESS [Concomitant]
     Active Substance: LINACLOTIDE
     Indication: Abdominal discomfort
     Dosage: 290 MG, DAILY
  16. CLONAZEPAM [Concomitant]
     Active Substance: CLONAZEPAM
     Indication: Insomnia
     Dosage: 1 MG, 1X/DAY (AT NIGHT)
  17. DILTIAZEM [Concomitant]
     Active Substance: DILTIAZEM
     Indication: Blood pressure measurement
     Dosage: 180 MG, DAILY
  18. OMEPRAZOLE [Concomitant]
     Active Substance: OMEPRAZOLE
     Indication: Dyspepsia
     Dosage: 40 MG, DAILY
  19. BACLOFEN [Concomitant]
     Active Substance: BACLOFEN
     Indication: Back pain

REACTIONS (4)
  - Palpitations [Recovered/Resolved]
  - Drug ineffective [Recovered/Resolved]
  - Chest discomfort [Recovered/Resolved]
  - Anxiety [Recovering/Resolving]

NARRATIVE: CASE EVENT DATE: 20250201
